FAERS Safety Report 4363431-4 (Version None)
Quarter: 2004Q2

REPORT INFORMATION
  Report Type: 
  Country: None (occurrence: None)
  Receive Date: 20040524
  Receipt Date: 20040507
  Transmission Date: 20050107
  Serious: Yes (Other)
  Sender: FDA-Public Use
  Company Number: AT-GLAXOSMITHKLINE-B0332297A

PATIENT
  Age: 11 Year
  Sex: Male
  Weight: 32 kg

DRUGS (2)
  1. AUGMENTIN [Suspect]
     Indication: URINARY TRACT INFECTION
     Dosage: 1TAB PER DAY
     Route: 048
     Dates: start: 20040226, end: 20040302
  2. PARKEMED [Concomitant]
     Indication: PYREXIA
     Dosage: 250MG PER DAY
     Route: 048
     Dates: start: 20040227, end: 20040228

REACTIONS (3)
  - ABNORMAL FAECES [None]
  - DIARRHOEA HAEMORRHAGIC [None]
  - GASTROINTESTINAL MUCOSAL DISORDER [None]
